FAERS Safety Report 13624469 (Version 1)
Quarter: 2017Q2

REPORT INFORMATION
  Report Type: Spontaneous
  Country: CN (occurrence: CN)
  Receive Date: 20170608
  Receipt Date: 20170608
  Transmission Date: 20170830
  Serious: Yes (Other)
  Sender: FDA-Public Use
  Company Number: CN-APOTEX-2017AP012690

PATIENT

DRUGS (1)
  1. SEROXAT [Suspect]
     Active Substance: PAROXETINE HYDROCHLORIDE
     Indication: DEPRESSION
     Dosage: UNK
     Route: 065

REACTIONS (4)
  - Gastrointestinal disorder [Unknown]
  - Drug use disorder [Unknown]
  - Renal impairment [Unknown]
  - Weight increased [Unknown]
